FAERS Safety Report 6454697-5 (Version None)
Quarter: 2009Q4

REPORT INFORMATION
  Report Type: 
  Country: None (occurrence: None)
  Receive Date: 20091124
  Receipt Date: 20091116
  Transmission Date: 20100525
  Serious: Yes (Hospitalization)
  Sender: FDA-Public Use
  Company Number: US-ELI_LILLY_AND_COMPANY-US200906006757

PATIENT
  Sex: Male
  Weight: 73.5 kg

DRUGS (4)
  1. PEMETREXED [Suspect]
     Indication: PROSTATE CANCER
     Dosage: 500 MG/M2, OTHER
     Route: 042
     Dates: start: 20090202
  2. OXALIPLATIN [Suspect]
     Indication: PROSTATE CANCER
     Dosage: 120 MG/M2, UNK
     Route: 042
     Dates: start: 20090202
  3. GLYBURIDE [Concomitant]
     Indication: DIABETES MELLITUS
  4. METOPROLOL TARTRATE [Concomitant]
     Indication: HYPERTENSION

REACTIONS (3)
  - DIZZINESS [None]
  - MUSCULAR WEAKNESS [None]
  - SYNCOPE [None]
